FAERS Safety Report 24144966 (Version 1)
Quarter: 2024Q3

REPORT INFORMATION
  Report Type: Spontaneous
  Country: MG (occurrence: MG)
  Receive Date: 20240729
  Receipt Date: 20240729
  Transmission Date: 20241016
  Serious: Yes (Death, Other)
  Sender: AMNEAL
  Company Number: MG-AMNEAL PHARMACEUTICALS-2024-AMRX-02713

PATIENT
  Age: 19 Year
  Sex: Female

DRUGS (1)
  1. DOXYCYCLINE [Suspect]
     Active Substance: DOXYCYCLINE\DOXYCYCLINE HYCLATE
     Indication: Malaria prophylaxis
     Dosage: UNK
     Route: 065

REACTIONS (4)
  - Paranoia [Fatal]
  - Injury [Fatal]
  - Completed suicide [Fatal]
  - Psychotic disorder [Fatal]

NARRATIVE: CASE EVENT DATE: 20190701
